FAERS Safety Report 23896517 (Version 2)
Quarter: 2024Q2

REPORT INFORMATION
  Report Type: Spontaneous
  Country: US (occurrence: US)
  Receive Date: 20240524
  Receipt Date: 20240529
  Transmission Date: 20240716
  Serious: Yes (Other)
  Sender: FDA-Public Use
  Company Number: US-BRISTOL-MYERS SQUIBB COMPANY-2024-078593

PATIENT
  Age: 38 Year
  Sex: Female

DRUGS (2)
  1. SPRYCEL [Suspect]
     Active Substance: DASATINIB
     Indication: Chronic myeloid leukaemia
     Route: 048
     Dates: start: 202404
  2. PEGASYS PFS [Concomitant]
     Indication: Product used for unknown indication
     Dosage: (.5ML/SYR X 4)

REACTIONS (4)
  - Neuropathy peripheral [Unknown]
  - Fatigue [Recovering/Resolving]
  - Limb discomfort [Unknown]
  - Aphthous ulcer [Unknown]
